FAERS Safety Report 14533943 (Version 1)
Quarter: 2018Q1

REPORT INFORMATION
  Report Type: Spontaneous
  Country: US (occurrence: US)
  Receive Date: 20180215
  Receipt Date: 20180215
  Transmission Date: 20180509
  Serious: No
  Sender: FDA-Public Use
  Company Number: US-OTSUKA-2017_025629

PATIENT
  Age: 72 Year
  Sex: Male

DRUGS (4)
  1. BUSULFEX [Suspect]
     Active Substance: BUSULFAN
     Indication: STEM CELL TRANSPLANT
     Dosage: UNK
     Route: 065
  2. IDARUBICIN [Concomitant]
     Active Substance: IDARUBICIN
     Indication: CHEMOTHERAPY
     Dosage: UNK
     Route: 065
     Dates: start: 201408
  3. FLUDARABINE [Suspect]
     Active Substance: FLUDARABINE PHOSPHATE
     Indication: STEM CELL TRANSPLANT
     Dosage: UNK
     Route: 065
  4. CYTARABINE. [Concomitant]
     Active Substance: CYTARABINE
     Indication: CHEMOTHERAPY
     Dosage: UNK
     Route: 065
     Dates: start: 201408

REACTIONS (3)
  - Product use in unapproved indication [Unknown]
  - Drug administration error [Unknown]
  - Alopecia [Recovered/Resolved]
